FAERS Safety Report 7906676-6 (Version None)
Quarter: 2011Q4

REPORT INFORMATION
  Report Type: 
  Country: None (occurrence: None)
  Receive Date: 20111110
  Receipt Date: 20111102
  Transmission Date: 20120403
  Serious: Yes (Other)
  Sender: FDA-Public Use
  Company Number: US-JNJFOC-2007057460

PATIENT
  Sex: Female

DRUGS (17)
  1. STATINS [Suspect]
     Indication: BLOOD CHOLESTEROL INCREASED
  2. LYRICA [Suspect]
     Indication: FIBROMYALGIA
     Dosage: DAILY DOSE QTY: 150 MG
     Dates: start: 20070705
  3. METHOTREXATE [Suspect]
     Indication: INFLAMMATION
     Dates: start: 20070101
  4. TYLENOL-500 [Concomitant]
     Dosage: DOSAGE WAS IN THE MORNING
  5. PREDNISONE TAB [Suspect]
     Indication: INFLAMMATION
     Dates: end: 20070101
  6. INSULIN [Concomitant]
  7. LIPITOR [Suspect]
     Indication: BLOOD CHOLESTEROL INCREASED
  8. PINDOLOL [Concomitant]
  9. ZYRTEC [Suspect]
     Route: 048
  10. PREDNISONE TAB [Suspect]
     Indication: RHEUMATOID ARTHRITIS
     Dates: end: 20070101
  11. ASPIRIN [Concomitant]
  12. ZETIA [Concomitant]
  13. VALIUM [Concomitant]
     Dates: start: 20070701
  14. MULTI-VITAMINS [Concomitant]
  15. ZYRTEC [Suspect]
     Indication: HYPERSENSITIVITY
     Dosage: DAILY DOSE QTY: 10 MG
     Route: 048
  16. METHOTREXATE [Suspect]
     Indication: RHEUMATOID ARTHRITIS
     Dates: start: 20070101
  17. QUININE SULFATE [Concomitant]

REACTIONS (23)
  - VITRECTOMY [None]
  - CATARACT OPERATION [None]
  - DIZZINESS [None]
  - HAEMATOCRIT DECREASED [None]
  - FIBROMYALGIA [None]
  - HANGOVER [None]
  - JOINT SWELLING [None]
  - VISION BLURRED [None]
  - PSYCHOMOTOR HYPERACTIVITY [None]
  - DYSGEUSIA [None]
  - BALANCE DISORDER [None]
  - ULCER HAEMORRHAGE [None]
  - FATIGUE [None]
  - SOMNOLENCE [None]
  - HAEMOGLOBIN DECREASED [None]
  - EPSTEIN-BARR VIRUS INFECTION [None]
  - MYALGIA [None]
  - SALIVARY HYPERSECRETION [None]
  - FUNGAL INFECTION [None]
  - BLOOD GLUCOSE INCREASED [None]
  - BLOOD CHOLESTEROL INCREASED [None]
  - MUSCULOSKELETAL STIFFNESS [None]
  - WEIGHT INCREASED [None]
